FAERS Safety Report 8501490-5 (Version None)
Quarter: 2012Q3

REPORT INFORMATION
  Report Type: 
  Country: None (occurrence: None)
  Receive Date: 20120710
  Receipt Date: 20120629
  Transmission Date: 20120928
  Serious: Yes (Other)
  Sender: FDA-Public Use
  Company Number: GB-TEVA-345843ISR

PATIENT
  Age: 69 Year
  Sex: Male
  Weight: 75 kg

DRUGS (11)
  1. GAVISCON [Concomitant]
  2. ALLOPURINOL [Concomitant]
  3. RAMIPRIL [Concomitant]
  4. ALBUTEROL SULATE [Concomitant]
  5. BENDROFLUMETHIAZIDE [Concomitant]
  6. DUTASTERIDE [Concomitant]
  7. BECLOMETHASONE DIPROPIONATE [Concomitant]
  8. TAMSULOSIN HCL [Concomitant]
  9. PANTOPRAZOLE [Concomitant]
  10. GABAPENTIN [Suspect]
     Indication: NEURALGIA
     Route: 048
     Dates: start: 20120611, end: 20120618
  11. ATORVASTATIN [Concomitant]

REACTIONS (1)
  - VIOLENCE-RELATED SYMPTOM [None]
